FAERS Safety Report 10375109 (Version 1)
Quarter: 2014Q3

REPORT INFORMATION
  Report Type: Report from Study
  Country: US (occurrence: US)
  Receive Date: 20140811
  Receipt Date: 20140811
  Transmission Date: 20150326
  Serious: Yes (Life-Threatening)
  Sender: FDA-Public Use
  Company Number: US-SA-2014SA106601

PATIENT
  Age: 59 Year
  Sex: Female
  Weight: 50.8 kg

DRUGS (3)
  1. CABAZITAXEL [Suspect]
     Active Substance: CABAZITAXEL
     Indication: GASTRIC CANCER
     Route: 042
     Dates: start: 20130129, end: 20130129
  2. CABAZITAXEL [Suspect]
     Active Substance: CABAZITAXEL
     Indication: GASTRIC CANCER
     Route: 042
     Dates: start: 20130108, end: 20130108
  3. LOVENOX [Concomitant]
     Active Substance: ENOXAPARIN SODIUM
     Indication: EMBOLISM

REACTIONS (3)
  - Hypocalcaemia [Recovering/Resolving]
  - Neutrophil count decreased [Recovering/Resolving]
  - Hypokalaemia [Recovering/Resolving]

NARRATIVE: CASE EVENT DATE: 20130122
